FAERS Safety Report 8077454-5 (Version None)
Quarter: 2012Q1

REPORT INFORMATION
  Report Type: 
  Country: None (occurrence: None)
  Receive Date: 20120127
  Receipt Date: 20120117
  Transmission Date: 20120608
  Serious: Yes (Other)
  Sender: FDA-Public Use
  Company Number: US-BRISTOL-MYERS SQUIBB COMPANY-15859762

PATIENT
  Age: 21 Year
  Sex: Female
  Weight: 73 kg

DRUGS (17)
  1. EPIVIR [Concomitant]
     Dosage: 1DF:3/4 TAB 150 UNITS NOS
  2. VIRAMUNE [Concomitant]
     Dosage: TAB
  3. ZERIT [Suspect]
     Indication: HIV INFECTION
     Dosage: 1DF:1 CAPSULE ALSO 20MG BID
  4. BIAXIN [Concomitant]
     Dosage: ALSO 250 UNITS NOS
     Route: 048
  5. SPIRONOLACTONE [Concomitant]
  6. CLARITIN [Concomitant]
  7. VIDEX [Concomitant]
     Dosage: 1DF:50 UNITS NOS
  8. ZYRTEC [Concomitant]
  9. NORVIR [Suspect]
     Dates: end: 20100701
  10. TRUVADA [Suspect]
     Dosage: 1 DF : 300/200 UNITS NOS
     Dates: end: 20100701
  11. FLOXIN [Concomitant]
  12. ABACAVIR [Concomitant]
     Dosage: 1DF:3.5CC
  13. REYATAZ [Suspect]
     Dates: end: 20100701
  14. ZIAGEN [Concomitant]
     Dosage: TAB
     Route: 048
  15. VIRACEPT [Concomitant]
     Dosage: 1DF:6 PILLS,1500 UNITS NOS STRENGTH:350MG 1250 BID
  16. BACTRIM [Concomitant]
     Dosage: 1DF:80 NOS
  17. MYAMBUTOL [Concomitant]
     Dosage: 1DF:200 UNITS NOS

REACTIONS (20)
  - URINARY TRACT INFECTION [None]
  - HEADACHE [None]
  - HIDRADENITIS [None]
  - ILEUS PARALYTIC [None]
  - UPPER-AIRWAY COUGH SYNDROME [None]
  - CHEST PAIN [None]
  - DIARRHOEA [None]
  - DYSLIPIDAEMIA [None]
  - SINUSITIS [None]
  - ECZEMA [None]
  - DEPRESSED MOOD [None]
  - PHARYNGOTONSILLITIS [None]
  - ORAL CANDIDIASIS [None]
  - SUICIDE ATTEMPT [None]
  - DEPRESSION [None]
  - PHARYNGITIS STREPTOCOCCAL [None]
  - LIPOHYPERTROPHY [None]
  - BRONCHITIS [None]
  - LIPODYSTROPHY ACQUIRED [None]
  - POLYCYSTIC OVARIES [None]
